FAERS Safety Report 6059381-8 (Version None)
Quarter: 2009Q1

REPORT INFORMATION
  Report Type: 
  Country: None (occurrence: None)
  Receive Date: 20090128
  Receipt Date: 20090128
  Transmission Date: 20090719
  Serious: Yes (Death, Hospitalization)
  Sender: FDA-Public Use
  Company Number: None

PATIENT
  Sex: Male
  Weight: 85.1 kg

DRUGS (2)
  1. DACARBAZINE [Suspect]
     Indication: MALIGNANT MELANOMA
     Dosage: 800MG/M2 Q3 WEEKS
  2. DASATINIB [Suspect]
     Indication: MALIGNANT MELANOMA
     Dosage: 70MG BID DAYS 2-19

REACTIONS (10)
  - BLOOD CREATININE INCREASED [None]
  - BLOOD UREA INCREASED [None]
  - DEHYDRATION [None]
  - DISEASE PROGRESSION [None]
  - GENERAL PHYSICAL HEALTH DETERIORATION [None]
  - HEART RATE INCREASED [None]
  - MYELOPROLIFERATIVE DISORDER [None]
  - PNEUMONIA PRIMARY ATYPICAL [None]
  - PULMONARY CONGESTION [None]
  - SUPRAVENTRICULAR TACHYCARDIA [None]
